FAERS Safety Report 15365902 (Version 1)
Quarter: 2018Q3

REPORT INFORMATION
  Report Type: Spontaneous
  Country: US (occurrence: US)
  Receive Date: 20180831
  Receipt Date: 20180831
  Transmission Date: 20181010
  Serious: No
  Sender: FDA-Public Use
  Company Number: None

PATIENT
  Age: 77 Year
  Sex: Female
  Weight: 70.76 kg

DRUGS (14)
  1. SMZ?TMP DS TAB  SUB FOR BACTRIM DS TABLET [Suspect]
     Active Substance: SULFAMETHOXAZOLE\TRIMETHOPRIM
     Indication: ESCHERICHIA TEST POSITIVE
     Dosage: ?          QUANTITY:14 DF DOSAGE FORM;?
     Route: 048
     Dates: start: 20180802, end: 20180810
  2. SMZ?TMP DS TAB  SUB FOR BACTRIM DS TABLET [Suspect]
     Active Substance: SULFAMETHOXAZOLE\TRIMETHOPRIM
     Indication: BLOOD URINE PRESENT
     Dosage: ?          QUANTITY:14 DF DOSAGE FORM;?
     Route: 048
     Dates: start: 20180802, end: 20180810
  3. BENEFIBER [Concomitant]
     Active Substance: STARCH, WHEAT
  4. CENTRUM + OTHER VITAMINS [Concomitant]
  5. CENTRUM SILVER FOR WOMEN [Concomitant]
     Active Substance: MINERALS\VITAMINS
  6. LIQUID COQ10 [Concomitant]
  7. ATORVASTATIN [Concomitant]
     Active Substance: ATORVASTATIN
  8. SMZ?TMP DS TAB  SUB FOR BACTRIM DS TABLET [Suspect]
     Active Substance: SULFAMETHOXAZOLE\TRIMETHOPRIM
     Indication: URINARY TRACT INFECTION
     Dosage: ?          QUANTITY:14 DF DOSAGE FORM;?
     Route: 048
     Dates: start: 20180802, end: 20180810
  9. SYNTHROID [Concomitant]
     Active Substance: LEVOTHYROXINE SODIUM
  10. FAMOTIDINE. [Concomitant]
     Active Substance: FAMOTIDINE
  11. MORE FREE [Concomitant]
  12. LIPITOR [Concomitant]
     Active Substance: ATORVASTATIN CALCIUM
  13. VITAMINS [Concomitant]
     Active Substance: VITAMINS
  14. CALCIUM CITRATE W/500MG CALCIUM [Concomitant]

REACTIONS (1)
  - Constipation [None]

NARRATIVE: CASE EVENT DATE: 20180802
